FAERS Safety Report 7233443-1 (Version None)
Quarter: 2011Q1

REPORT INFORMATION
  Report Type: 
  Country: None (occurrence: None)
  Receive Date: 20110119
  Receipt Date: 20110112
  Transmission Date: 20110831
  Serious: No
  Sender: FDA-Public Use
  Company Number: US-TEVA-263156USA

PATIENT
  Sex: Female

DRUGS (3)
  1. SINEMET [Concomitant]
  2. ALPRAZOLAM [Concomitant]
  3. AZILECT [Suspect]
     Indication: PARKINSON'S DISEASE
     Route: 048

REACTIONS (1)
  - BLOOD PRESSURE INCREASED [None]
